FAERS Safety Report 11692744 (Version 1)
Quarter: 2015Q4

REPORT INFORMATION
  Report Type: Spontaneous
  Country: US (occurrence: US)
  Receive Date: 20151103
  Receipt Date: 20151103
  Transmission Date: 20160304
  Serious: Yes (Hospitalization)
  Sender: FDA-Public Use
  Company Number: US-UNITED THERAPEUTICS-UNT-2015-013541

PATIENT
  Sex: Female

DRUGS (1)
  1. REMODULIN [Suspect]
     Active Substance: TREPROSTINIL
     Indication: PULMONARY ARTERIAL HYPERTENSION
     Dosage: 0.040 ?G/KG, Q48
     Route: 041
     Dates: start: 201509

REACTIONS (9)
  - Delusion [Unknown]
  - Bacteraemia [Unknown]
  - Diarrhoea [Unknown]
  - Pyrexia [Unknown]
  - Gastrointestinal infection [Unknown]
  - Headache [Unknown]
  - Acidosis [Unknown]
  - Pain in jaw [Unknown]
  - Oxygen saturation decreased [Unknown]

NARRATIVE: CASE EVENT DATE: 201510
